FAERS Safety Report 7215731-8 (Version None)
Quarter: 2011Q1

REPORT INFORMATION
  Report Type: 
  Country: None (occurrence: None)
  Receive Date: 20110107
  Receipt Date: 20101227
  Transmission Date: 20110831
  Serious: Yes (Other)
  Sender: FDA-Public Use
  Company Number: FR-ELI_LILLY_AND_COMPANY-FR200911004975

PATIENT
  Age: 43 Year
  Sex: Female

DRUGS (6)
  1. ZOLPIDEM [Concomitant]
     Indication: DEPRESSION
     Dosage: 10 MG, DAILY (1/D)
     Route: 048
     Dates: start: 20090724, end: 20091118
  2. TRIPHASIL-21 [Concomitant]
  3. LORAZEPAM [Concomitant]
     Indication: INSOMNIA
     Dosage: 3 MG, DAILY (1/D)
     Route: 048
     Dates: start: 20090724, end: 20091118
  4. CYMBALTA [Suspect]
     Indication: DEPRESSION
     Dosage: 90 MG, DAILY (1/D)
     Route: 048
     Dates: start: 20091001, end: 20091116
  5. CYMBALTA [Suspect]
     Dosage: 60 MG, DAILY (1/D)
     Route: 048
     Dates: start: 20091117, end: 20091118
  6. ZOLOFT [Concomitant]
     Dosage: 50 MG, DAILY (1/D)
     Route: 048
     Dates: start: 20091118

REACTIONS (3)
  - DIABETES MELLITUS [None]
  - ANAEMIA [None]
  - DRUG EXPOSURE DURING PREGNANCY [None]
